FAERS Safety Report 7942036-X (Version None)
Quarter: 2011Q4

REPORT INFORMATION
  Report Type: 
  Country: None (occurrence: None)
  Receive Date: 20111128
  Receipt Date: 20111117
  Transmission Date: 20120403
  Serious: Yes (Hospitalization, Other)
  Sender: FDA-Public Use
  Company Number: US-BAYER-2011-037553

PATIENT
  Age: 36 Year
  Sex: Female
  Weight: 102 kg

DRUGS (5)
  1. PROZAC [Concomitant]
     Indication: ANXIETY
     Dosage: UNK
     Dates: start: 20030101
  2. METFORMIN HCL [Concomitant]
     Indication: POLYCYSTIC OVARIES
     Dosage: UNK
     Dates: start: 20010101
  3. ANTIBIOTICS [Concomitant]
     Indication: CHRONIC SINUSITIS
     Dosage: UNK
     Dates: start: 20060101, end: 20090101
  4. PRILOSEC [Concomitant]
     Dosage: UNK
     Dates: start: 20060601
  5. YAZ [Suspect]
     Indication: ACNE
     Dosage: UNK
     Dates: start: 20080801

REACTIONS (4)
  - PAIN [None]
  - GALLBLADDER DISORDER [None]
  - CHOLELITHIASIS [None]
  - BILIARY COLIC [None]
